FAERS Safety Report 18186521 (Version 1)
Quarter: 2020Q3

REPORT INFORMATION
  Report Type: Spontaneous
  Country: US (occurrence: US)
  Receive Date: 20200822
  Receipt Date: 20200822
  Transmission Date: 20201103
  Serious: Yes (Hospitalization)
  Sender: FDA-Public Use
  Company Number: None

PATIENT
  Age: 2 Year
  Sex: Male
  Weight: 11.48 kg

DRUGS (3)
  1. ZINECARD [Suspect]
     Active Substance: DEXRAZOXANE HYDROCHLORIDE
     Dates: end: 20200729
  2. DOXORUBICIN HYDROCHLORIDE. [Suspect]
     Active Substance: DOXORUBICIN HYDROCHLORIDE
     Dates: end: 20200729
  3. CISPLATIN. [Suspect]
     Active Substance: CISPLATIN

REACTIONS (2)
  - Febrile neutropenia [None]
  - Blood phosphorus decreased [None]

NARRATIVE: CASE EVENT DATE: 20200809
